FAERS Safety Report 11397902 (Version 1)
Quarter: 2015Q3

REPORT INFORMATION
  Report Type: Spontaneous
  Country: US (occurrence: US)
  Receive Date: 20150819
  Receipt Date: 20150819
  Transmission Date: 20151125
  Serious: Yes (Other)
  Sender: FDA-Public Use
  Company Number: US-ENDO PHARMACEUTICALS INC.-2015-002409

PATIENT
  Age: 54 Year
  Sex: Male
  Weight: 90.8 kg

DRUGS (1)
  1. AVEED [Suspect]
     Active Substance: TESTOSTERONE UNDECANOATE
     Indication: HYPOGONADISM
     Route: 030
     Dates: start: 20150813

REACTIONS (5)
  - Pallor [Unknown]
  - Urinary incontinence [Unknown]
  - Loss of consciousness [Recovered/Resolved]
  - Hyperhidrosis [Unknown]
  - Seizure [Unknown]

NARRATIVE: CASE EVENT DATE: 20150813
